FAERS Safety Report 9064902 (Version 2)
Quarter: 2013Q1

REPORT INFORMATION
  Report Type: Spontaneous
  Country: US (occurrence: US)
  Receive Date: 20130206
  Receipt Date: 20130313
  Transmission Date: 20140127
  Serious: Yes (Other)
  Sender: FDA-Public Use
  Company Number: US-BAYER-2013-015399

PATIENT
  Age: 30 Year
  Sex: Female
  Weight: 64 kg

DRUGS (4)
  1. MIRENA [Suspect]
     Indication: CONTRACEPTION
     Dosage: 20 MCG/24HR, CONT
     Route: 015
     Dates: start: 20120726
  2. ZIRTEC [Concomitant]
  3. BENZOYL PEROXIDE [Concomitant]
  4. DIFFERIN [Concomitant]

REACTIONS (11)
  - Genital haemorrhage [Recovered/Resolved]
  - Pain [Recovered/Resolved]
  - Urinary incontinence [Recovered/Resolved]
  - Procedural pain [Recovered/Resolved]
  - Medical device discomfort [Recovered/Resolved]
  - Menstruation delayed [None]
  - Dyspareunia [None]
  - Dysmenorrhoea [None]
  - Acne [None]
  - Breast tenderness [None]
  - Smear cervix abnormal [None]
